FAERS Safety Report 4744361-2 (Version None)
Quarter: 2005Q3

REPORT INFORMATION
  Report Type: 
  Country: None (occurrence: None)
  Receive Date: 20050812
  Receipt Date: 20050603
  Transmission Date: 20060218
  Serious: Yes (Hospitalization, Disabling)
  Sender: FDA-Public Use
  Company Number: US-MERCK-0506USA01005

PATIENT
  Age: 39 Year
  Sex: Male
  Weight: 100 kg

DRUGS (3)
  1. ZESTRIL [Concomitant]
     Indication: HYPERTENSION
     Route: 048
     Dates: start: 19990101, end: 20020801
  2. VIOXX [Suspect]
     Indication: ARTHRALGIA
     Route: 048
     Dates: start: 19991007, end: 20020624
  3. ZOCOR [Concomitant]
     Indication: HYPERLIPIDAEMIA
     Route: 048
     Dates: start: 19990101, end: 20020601

REACTIONS (17)
  - ACUTE CORONARY SYNDROME [None]
  - ACUTE MYOCARDIAL INFARCTION [None]
  - BONE GRAFT [None]
  - CORONARY ARTERY THROMBOSIS [None]
  - DILATATION ATRIAL [None]
  - DYSPHAGIA [None]
  - HAEMORRHOIDS [None]
  - LOWER GASTROINTESTINAL HAEMORRHAGE [None]
  - MITRAL VALVE INCOMPETENCE [None]
  - POST PROCEDURAL DISCHARGE [None]
  - POST PROCEDURAL HAEMATOMA [None]
  - RECTAL POLYP [None]
  - SPINAL OPERATION [None]
  - SPINAL OSTEOARTHRITIS [None]
  - TRICUSPID VALVE INCOMPETENCE [None]
  - VENTRICULAR EXTRASYSTOLES [None]
  - VENTRICULAR HYPERTROPHY [None]
